FAERS Safety Report 8329547-2 (Version None)
Quarter: 2012Q2

REPORT INFORMATION
  Report Type: 
  Country: None (occurrence: None)
  Receive Date: 20120502
  Receipt Date: 20120427
  Transmission Date: 20120825
  Serious: No
  Sender: FDA-Public Use
  Company Number: US-PFIZER INC-2012104815

PATIENT
  Sex: Male
  Weight: 86 kg

DRUGS (4)
  1. LIPITOR [Suspect]
     Indication: BLOOD TRIGLYCERIDES INCREASED
  2. LOVAZA [Concomitant]
     Indication: BLOOD TRIGLYCERIDES INCREASED
  3. LOVAZA [Concomitant]
     Indication: BLOOD CHOLESTEROL INCREASED
     Dosage: 4 CAPSULES OF 1 GM DAILY IN EVENING
     Route: 048
     Dates: start: 20110101
  4. LIPITOR [Suspect]
     Indication: BLOOD CHOLESTEROL INCREASED
     Dosage: 40 MG, DAILY
     Route: 048
     Dates: start: 20110101, end: 20120401

REACTIONS (1)
  - MUSCULOSKELETAL PAIN [None]
